FAERS Safety Report 5568470-3 (Version None)
Quarter: 2007Q4

REPORT INFORMATION
  Report Type: 
  Country: None (occurrence: None)
  Receive Date: 20071220
  Receipt Date: 20071205
  Transmission Date: 20080405
  Serious: Yes (Hospitalization, Other)
  Sender: FDA-Public Use
  Company Number: FR-GENENTECH-252460

PATIENT
  Sex: Male
  Weight: 68.98 kg

DRUGS (2)
  1. AVASTIN [Suspect]
     Indication: LUNG NEOPLASM MALIGNANT
     Dosage: 10 MG/KG, UNK
     Route: 042
     Dates: start: 20071002, end: 20071127
  2. ERLOTINIB [Concomitant]
     Indication: DRUG USE FOR UNKNOWN INDICATION
     Dates: start: 20070915

REACTIONS (1)
  - DYSPHAGIA [None]
